FAERS Safety Report 22616877 (Version 1)
Quarter: 2023Q2

REPORT INFORMATION
  Report Type: Spontaneous
  Country: CN (occurrence: CN)
  Receive Date: 20230619
  Receipt Date: 20230619
  Transmission Date: 20230721
  Serious: Yes (Other)
  Sender: FDA-Public Use
  Company Number: CN-ABBVIE-5294044

PATIENT
  Age: 52 Year
  Sex: Male
  Weight: 53 kg

DRUGS (5)
  1. LOPINAVIR\RITONAVIR [Suspect]
     Active Substance: LOPINAVIR\RITONAVIR
     Indication: Antiviral treatment
     Dosage: 4 TABLET
     Route: 048
     Dates: start: 20230201, end: 20230410
  2. LAMIVUDINE [Concomitant]
     Active Substance: LAMIVUDINE
     Indication: Antiviral treatment
     Dosage: 1 TABLET
     Route: 048
     Dates: start: 20230201, end: 20230410
  3. ZIDOVUDINE [Concomitant]
     Active Substance: ZIDOVUDINE
     Indication: Antiviral treatment
     Dosage: 2 TABLET
     Route: 048
     Dates: start: 20230201, end: 20230410
  4. EFAVIRENZ [Concomitant]
     Active Substance: EFAVIRENZ
     Indication: Product used for unknown indication
     Dosage: 1 TABLET, QD, PO
  5. LOPINAVIR\RITONAVIR [Suspect]
     Active Substance: LOPINAVIR\RITONAVIR
     Indication: Antiviral treatment
     Route: 065

REACTIONS (4)
  - Hyperlipidaemia [Recovering/Resolving]
  - Dizziness [Recovering/Resolving]
  - Decreased appetite [Recovering/Resolving]
  - Adverse drug reaction [Unknown]

NARRATIVE: CASE EVENT DATE: 20230101
